FAERS Safety Report 14281501 (Version 1)
Quarter: 2017Q4

REPORT INFORMATION
  Report Type: Spontaneous
  Country: US (occurrence: None)
  Receive Date: 20171213
  Receipt Date: 20171213
  Transmission Date: 20180321
  Serious: Yes (Congenital Anomaly)
  Sender: FDA-Public Use
  Company Number: None

PATIENT
  Age: 23 Year
  Sex: Female
  Weight: 54.43 kg

DRUGS (1)
  1. ISOTRETINOIN, 40 MG [Suspect]
     Active Substance: ISOTRETINOIN
     Indication: ACNE CYSTIC
     Dates: start: 20171012, end: 20171212

REACTIONS (2)
  - Pregnancy test positive [None]
  - Pregnancy on contraceptive [None]

NARRATIVE: CASE EVENT DATE: 20171212
